FAERS Safety Report 5117620-1 (Version None)
Quarter: 2006Q3

REPORT INFORMATION
  Report Type: 
  Country: None (occurrence: None)
  Receive Date: 20060926
  Receipt Date: 20060908
  Transmission Date: 20061208
  Serious: Yes (Hospitalization)
  Sender: FDA-Public Use
  Company Number: US200609002327

PATIENT
  Sex: Female

DRUGS (2)
  1. FORTEO [Suspect]
     Indication: OSTEOPOROSIS
     Dates: start: 20050101
  2. FORTEO PEN (FORTEO PEN) PEN, DISPOSABLE [Concomitant]

REACTIONS (3)
  - BACK PAIN [None]
  - INTESTINAL OBSTRUCTION [None]
  - NEPHROLITHIASIS [None]
